FAERS Safety Report 6744630-0 (Version None)
Quarter: 2010Q2

REPORT INFORMATION
  Report Type: 
  Country: None (occurrence: None)
  Receive Date: 20100527
  Receipt Date: 20100517
  Transmission Date: 20101027
  Serious: Yes (Hospitalization)
  Sender: FDA-Public Use
  Company Number: Z0003880B

PATIENT
  Age: 64 Year
  Sex: Female
  Weight: 65.5 kg

DRUGS (4)
  1. OFATUMUMAB [Suspect]
     Indication: LYMPHOMA
     Route: 042
     Dates: start: 20100407
  2. DEXAMETHASONE [Suspect]
     Indication: LYMPHOMA
     Route: 042
     Dates: start: 20100407
  3. CISPLATIN [Suspect]
     Indication: LYMPHOMA
     Dosage: 100MGM2 CONTINUOUS
     Route: 042
     Dates: start: 20100408
  4. CYTARABINE [Suspect]
     Indication: LYMPHOMA
     Route: 042
     Dates: start: 20100409

REACTIONS (1)
  - HYPOKALAEMIA [None]
